FAERS Safety Report 11387682 (Version 2)
Quarter: 2015Q4

REPORT INFORMATION
  Report Type: Report from Study
  Country: JP (occurrence: JP)
  Receive Date: 20150817
  Receipt Date: 20151112
  Transmission Date: 20160304
  Serious: Yes (Death)
  Sender: FDA-Public Use
  Company Number: JP-OTSUKA-2015_005593

PATIENT

DRUGS (16)
  1. FAROM [Concomitant]
     Active Substance: FAROPENEM SODIUM
     Indication: PRODUCT USED FOR UNKNOWN INDICATION
     Dosage: 600 MG, DAILY DOSE
     Route: 048
     Dates: end: 20150429
  2. LOXONIN [Concomitant]
     Active Substance: LOXOPROFEN SODIUM
     Indication: PRODUCT USED FOR UNKNOWN INDICATION
     Dosage: 180 MG, DAILY DOSE
     Route: 048
     Dates: end: 20150529
  3. SPIRONOLACTONE. [Suspect]
     Active Substance: SPIRONOLACTONE
     Indication: FLUID RETENTION
     Dosage: 50 MG, DAILY DOSE
     Route: 048
  4. FUROSEMIDE. [Concomitant]
     Active Substance: FUROSEMIDE
     Indication: FLUID RETENTION
     Dosage: 20 MG, DAILY DOSE
     Route: 042
     Dates: end: 20150405
  5. TAMSULOSIN HYDROCHLORIDE. [Concomitant]
     Active Substance: TAMSULOSIN HYDROCHLORIDE
     Indication: PRODUCT USED FOR UNKNOWN INDICATION
     Dosage: 0.2 MG, DAILY DOSE
     Route: 048
  6. TS-1 [Concomitant]
     Active Substance: GIMERACIL\OTERACIL\TEGAFUR
     Indication: PRODUCT USED FOR UNKNOWN INDICATION
     Dosage: 100 MG, DAILY DOSE
     Route: 048
     Dates: start: 20150414, end: 20150522
  7. TOLVAPTAN [Suspect]
     Active Substance: TOLVAPTAN
     Indication: FLUID RETENTION
     Dosage: 7.5 MG, QD (IN THE MORNING)
     Route: 048
     Dates: start: 20150407, end: 20150420
  8. METHYCOBAL [Concomitant]
     Active Substance: METHYLCOBALAMIN
     Indication: HYPOAESTHESIA
     Dosage: 1500 ?G, DAILY DOSE
     Route: 048
  9. FUROSEMIDE. [Suspect]
     Active Substance: FUROSEMIDE
     Indication: FLUID RETENTION
     Dosage: 40 MG, DAILY DOSE
     Route: 048
  10. ALBUMIN [Concomitant]
     Active Substance: ALBUMIN (HUMAN)
     Indication: OEDEMA DUE TO HEPATIC DISEASE
     Dosage: 100 ML, DAILY DOSE
     Route: 042
     Dates: end: 20150405
  11. AMINOVACT [Concomitant]
     Indication: PRODUCT USED FOR UNKNOWN INDICATION
     Dosage: 3 DF, DAILY DOSE
     Route: 048
  12. URSODEOXYCHOLIC ACID [Concomitant]
     Active Substance: URSODIOL
     Indication: PRODUCT USED FOR UNKNOWN INDICATION
     Dosage: 600 MG, DAILY DOSE
     Route: 048
  13. ESOMEPRAZOLE MAGNESIUM. [Concomitant]
     Active Substance: ESOMEPRAZOLE MAGNESIUM
     Indication: PROPHYLAXIS
     Dosage: 20 MG, DAILY DOSE
     Route: 048
  14. HERBAL NOS [Concomitant]
     Active Substance: HERBALS
     Indication: DECREASED APPETITE
     Dosage: 7.5 G, DAILY DOSE
     Route: 048
  15. MAINTATE [Concomitant]
     Active Substance: BISOPROLOL FUMARATE
     Indication: PRODUCT USED FOR UNKNOWN INDICATION
     Dosage: 0.625 MG, DAILY DOSE
     Route: 048
  16. MAGMITT [Concomitant]
     Active Substance: MAGNESIUM OXIDE
     Indication: PRODUCT USED FOR UNKNOWN INDICATION
     Dosage: 1980 MG, DAILY DOSE
     Route: 048

REACTIONS (2)
  - Hyperuricaemia [Not Recovered/Not Resolved]
  - Pancreatic carcinoma [Fatal]

NARRATIVE: CASE EVENT DATE: 20150409
